FAERS Safety Report 6898505-7 (Version None)
Quarter: 2010Q3

REPORT INFORMATION
  Report Type: 
  Country: None (occurrence: None)
  Receive Date: 20100802
  Receipt Date: 20071017
  Transmission Date: 20110219
  Serious: No
  Sender: FDA-Public Use
  Company Number: US-PFIZER INC-2007088921

PATIENT
  Sex: Male
  Weight: 95.7 kg

DRUGS (2)
  1. LYRICA [Suspect]
     Indication: PAIN
     Route: 048
     Dates: start: 20070501
  2. AMLODIPINE [Concomitant]
     Route: 048
     Dates: start: 20060101

REACTIONS (1)
  - WEIGHT INCREASED [None]
